FAERS Safety Report 5063490-X (Version None)
Quarter: 2006Q3

REPORT INFORMATION
  Report Type: 
  Country: None (occurrence: None)
  Receive Date: 20060727
  Receipt Date: 20060209
  Transmission Date: 20061208
  Serious: Yes (Hospitalization, Other)
  Sender: FDA-Public Use
  Company Number: PL-BRISTOL-MYERS SQUIBB COMPANY-13277157

PATIENT
  Age: 34 Year
  Sex: Female

DRUGS (7)
  1. CISPLATIN [Suspect]
     Indication: GASTRIC CANCER
     Route: 041
     Dates: start: 20060126, end: 20060126
  2. FLUOROURACIL [Suspect]
     Indication: GASTRIC CANCER
     Route: 041
     Dates: start: 20060126, end: 20060126
  3. ESPUMISAN [Concomitant]
     Indication: ABDOMINAL PAIN
     Route: 048
     Dates: start: 20060117
  4. CIPROFLOXACIN [Concomitant]
     Indication: URINARY TRACT INFECTION
     Route: 048
     Dates: start: 20060118, end: 20060125
  5. BARALGIN [Concomitant]
     Indication: ABDOMINAL PAIN
     Route: 042
     Dates: start: 20060116
  6. METOCLOPRAMIDE [Concomitant]
     Indication: ABDOMINAL PAIN
     Route: 048
     Dates: start: 20060118
  7. FENTANYL [Concomitant]
     Indication: ABDOMINAL PAIN
     Route: 058
     Dates: start: 20060112

REACTIONS (1)
  - GASTROINTESTINAL HAEMORRHAGE [None]
